FAERS Safety Report 11030691 (Version 3)
Quarter: 2015Q2

REPORT INFORMATION
  Report Type: Report from Study
  Country: JP (occurrence: JP)
  Receive Date: 20150415
  Receipt Date: 20150602
  Transmission Date: 20150821
  Serious: Yes (Death)
  Sender: FDA-Public Use
  Company Number: JP-SA-2015SA047830

PATIENT
  Age: 29 Year
  Sex: Female

DRUGS (9)
  1. ANTI-THYMOCYTE GLOBULIN (RABBIT)/RABBIT ANTI-HUMAN THYMOCYTE IMMUNOGLOBULIN [Suspect]
     Active Substance: LAPINE T-LYMPHOCYTE IMMUNE GLOBULIN
     Indication: BONE MARROW CONDITIONING REGIMEN
     Dosage: RABBIT ATG 1MG/KG/DAY, DAYS -2 AND -1
     Route: 065
  2. FLUDARABINE PHOSPHATE. [Suspect]
     Active Substance: FLUDARABINE PHOSPHATE
     Indication: BONE MARROW CONDITIONING REGIMEN
     Dosage: FLUDARABINE 30 MG/M2/DAY, DAYS -8 T0 -3
     Route: 065
  3. METHYLPREDNISOLONE. [Concomitant]
     Active Substance: METHYLPREDNISOLONE
     Indication: PROPHYLAXIS AGAINST GRAFT VERSUS HOST DISEASE
     Dosage: GRADUAL DOSE REDUCTION FROM DAY +21
  4. LENOGRASTIM [Concomitant]
     Active Substance: LENOGRASTIM
     Dosage: STARTED ON DAY +1 AND CONTINUED UNTIL NEUTROPHIL RECOVERY WAS ACHIEVED
  5. MELPHALAN [Suspect]
     Active Substance: MELPHALAN
     Indication: BONE MARROW CONDITIONING REGIMEN
     Dosage: MELPHALAN 70 MG/M2/DAY, DAYS -4 AND -3
     Route: 065
  6. ARA-C [Suspect]
     Active Substance: CYTARABINE
     Indication: BONE MARROW CONDITIONING REGIMEN
     Dosage: DAYS -8 TO -5 DOSE:1 GRAM(S)/SQUARE METER
     Route: 065
  7. GANCICLOVIR. [Concomitant]
     Active Substance: GANCICLOVIR
     Indication: PROPHYLAXIS
  8. METHYLPREDNISOLONE. [Concomitant]
     Active Substance: METHYLPREDNISOLONE
     Indication: PROPHYLAXIS AGAINST GRAFT VERSUS HOST DISEASE
  9. TACROLIMUS. [Concomitant]
     Active Substance: TACROLIMUS
     Indication: PROPHYLAXIS AGAINST GRAFT VERSUS HOST DISEASE

REACTIONS (7)
  - BK virus infection [None]
  - Interstitial lung disease [Fatal]
  - Thrombotic microangiopathy [None]
  - Acute graft versus host disease in skin [None]
  - Epstein-Barr virus associated lymphoproliferative disorder [None]
  - Cytomegalovirus test positive [None]
  - Cystitis [None]
